FAERS Safety Report 10626910 (Version 2)
Quarter: 2015Q4

REPORT INFORMATION
  Report Type: Other
  Country: DE (occurrence: DE)
  Receive Date: 20141204
  Receipt Date: 20151206
  Transmission Date: 20160304
  Serious: Yes (Other)
  Sender: FDA-Public Use
  Company Number: DE-MYLANLABS-2014M1012031

PATIENT

DRUGS (6)
  1. VACCINES [Concomitant]
     Active Substance: UNSPECIFIED INGREDIENT
     Indication: IMMUNISATION
     Dosage: DATE AND KIND OF VACCINATION UNKNOWN
     Route: 030
  2. TARDYFERON [Concomitant]
     Active Substance: FERROUS SULFATE\FOLIC ACID
     Indication: RESTLESS LEGS SYNDROME
     Dosage: DETAILS UNKNOWN
     Route: 048
  3. VENLAFAXINE [Suspect]
     Active Substance: VENLAFAXINE HYDROCHLORIDE
     Indication: ANXIETY DISORDER
     Dosage: 112.5 MG, QD (112.5 [MG/D ])
     Route: 048
     Dates: start: 20131118, end: 20140707
  4. PASPERTIN                          /00041902/ [Concomitant]
     Active Substance: METOCLOPRAMIDE HYDROCHLORIDE
     Indication: NAUSEA
     Dosage: NO DETAILS
     Route: 048
  5. CIPRALEX [Concomitant]
     Active Substance: ESCITALOPRAM OXALATE
     Indication: ANXIETY DISORDER
     Dosage: 30 [MG/D ]/ 30 MG/D, REDUCTION TO 20MG/D
     Route: 048
  6. DIAZEPAM. [Concomitant]
     Active Substance: DIAZEPAM
     Indication: ANXIETY DISORDER
     Dosage: 2.5 MG, QD (2.5 [MG/D ])
     Route: 048

REACTIONS (4)
  - Foetal death [Recovered/Resolved]
  - Exposure during pregnancy [Recovered/Resolved]
  - Amniotic cavity infection [Recovered/Resolved]
  - Stillbirth [Recovered/Resolved]
